FAERS Safety Report 16457667 (Version 1)
Quarter: 2019Q2

REPORT INFORMATION
  Report Type: Report from Study
  Country: FR (occurrence: FR)
  Receive Date: 20190620
  Receipt Date: 20190620
  Transmission Date: 20190711
  Serious: Yes (Other)
  Sender: FDA-Public Use
  Company Number: FR-PFIZER INC-2019259407

PATIENT

DRUGS (14)
  1. CISPLATIN. [Suspect]
     Active Substance: CISPLATIN
     Indication: OSTEOSARCOMA
     Dosage: 100 MG/M2, CYCLIC (DAY 1)
  2. MESNA. [Concomitant]
     Active Substance: MESNA
     Dosage: 6G/M2 (CYCLE 1, DAY 2 AND 15)
  3. DOXORUBICIN HCL [Suspect]
     Active Substance: DOXORUBICIN HYDROCHLORIDE
     Dosage: 60 MG/M2, CYCLIC (DAY 30 AND 45)
  4. GRANULOCYTE COLONY STIMULATING FACTOR [Concomitant]
     Active Substance: GRANULOCYTE COLONY-STIMULATING FACTOR NOS
     Indication: PROPHYLAXIS
     Dosage: 5 UG/KG, CYCLIC (AFTER EACH CHEMOTHERAPY COURSE (CYCLE 1 DAYS 6-11 AND DAYS 20-25))
     Route: 058
  5. GRANULOCYTE COLONY STIMULATING FACTOR [Concomitant]
     Active Substance: GRANULOCYTE COLONY-STIMULATING FACTOR NOS
     Dosage: 5 UG/KG, CYCLIC (DAYS 90-96) (DAYS 6-11) (3 CYCLES EVERY 3 WEEKS)
     Route: 058
  6. ETOPOSIDE. [Suspect]
     Active Substance: ETOPOSIDE
     Indication: OSTEOSARCOMA
     Dosage: (DAYS 90-96) 100 MG/M2, DAILY (DAYS 1-3) (3 CYCLES EVERY 3 WEEKS)
  7. MESNA. [Concomitant]
     Active Substance: MESNA
     Dosage: 6 G/M2 (CYCLE 2, DAY 31 AND 45)
  8. IFOSFAMIDE. [Suspect]
     Active Substance: IFOSFAMIDE
     Indication: OSTEOSARCOMA
     Dosage: 5 G/M2 (CYCLE 1 DAY 2 AND 15)
  9. IFOSFAMIDE. [Suspect]
     Active Substance: IFOSFAMIDE
     Dosage: (4 G/M2 (DAYS 1-3)) (3 CYCLES EVERY 3 WEEKS)(DAYS 90-96) CYCLIC
  10. DOXORUBICIN HCL [Suspect]
     Active Substance: DOXORUBICIN HYDROCHLORIDE
     Indication: OSTEOSARCOMA
     Dosage: 60 MG/M2, CYCLIC (DAY 1 AND 15)
  11. IFOSFAMIDE. [Suspect]
     Active Substance: IFOSFAMIDE
     Dosage: 5G/M2 (CYCLE 2 DAY 31 AND 45)
  12. MESNA. [Concomitant]
     Active Substance: MESNA
     Dosage: UNK (EQUIVALENT DOSE)
  13. GRANULOCYTE COLONY STIMULATING FACTOR [Concomitant]
     Active Substance: GRANULOCYTE COLONY-STIMULATING FACTOR NOS
     Dosage: 5 UG/KG, CYCLIC (CYCLE 2 DAYS 35-40 AND 50-55)
     Route: 058
  14. CISPLATIN. [Suspect]
     Active Substance: CISPLATIN
     Dosage: 100 MG/M2, CYCLIC (DAY 30)

REACTIONS (2)
  - Second primary malignancy [Not Recovered/Not Resolved]
  - Acute myeloid leukaemia [Not Recovered/Not Resolved]
